FAERS Safety Report 21385590 (Version 1)
Quarter: 2022Q3

REPORT INFORMATION
  Report Type: Spontaneous
  Country: US (occurrence: None)
  Receive Date: 20220926
  Receipt Date: 20220926
  Transmission Date: 20221027
  Serious: Yes (Death)
  Sender: FDA-Public Use
  Company Number: None

PATIENT
  Age: 61 Year
  Sex: Female
  Weight: 105.9 kg

DRUGS (2)
  1. MIRCERA [Suspect]
     Active Substance: METHOXY POLYETHYLENE GLYCOL-EPOETIN BETA
     Indication: Anaemia
     Dosage: 60 MCG ONCE  IVP?
     Route: 050
     Dates: start: 20220910, end: 20220910
  2. VENOFER [Suspect]
     Active Substance: IRON SUCROSE

REACTIONS (3)
  - Blood pressure increased [None]
  - Unresponsive to stimuli [None]
  - Haemodialysis [None]

NARRATIVE: CASE EVENT DATE: 20220910
